FAERS Safety Report 16069179 (Version 7)
Quarter: 2024Q2

REPORT INFORMATION
  Report Type: Spontaneous
  Country: CA (occurrence: CA)
  Receive Date: 20190313
  Receipt Date: 20240524
  Transmission Date: 20240715
  Serious: Yes (Life-Threatening, Other)
  Sender: FDA-Public Use
  Company Number: CA-BAXTER-2019BAX004935

PATIENT
  Age: 73 Year
  Sex: Male
  Weight: 107 kg

DRUGS (25)
  1. WATER FOR INJECTION [Suspect]
     Active Substance: WATER
     Indication: Product used for unknown indication
     Dosage: DOSAGE FORM: SOLUTION INTRAMUSCULAR, 10 ML
     Route: 042
  2. SODIUM CHLORIDE [Suspect]
     Active Substance: SODIUM CHLORIDE
     Indication: Product used for unknown indication
     Dosage: (DOSAGE FORM: SOLUTION INTRAVENOUS) AT AN UNSPECIFIED DOSE, 1 EVERY 1 DAY (SODIUM CHLORIDE INJECTION
     Route: 042
  3. SODIUM CHLORIDE [Suspect]
     Active Substance: SODIUM CHLORIDE
     Dosage: (DOSAGE FORM: SOLUTION FOR INFUSION) 100 ML, AT AN UNSPECIFIED FREQUENCY (SODIUM CHLORIDE INJECTION
     Route: 041
  4. SODIUM CHLORIDE [Suspect]
     Active Substance: SODIUM CHLORIDE
     Dosage: 100 ML, ONCE (DOSAGE FORM: SOLUTION INTRAVENOUS)
     Route: 042
  5. SODIUM CHLORIDE [Suspect]
     Active Substance: SODIUM CHLORIDE
     Dosage: 10 ML, AT AN UNSPECIFIED FREQUENCY
     Route: 041
  6. SODIUM CHLORIDE [Suspect]
     Active Substance: SODIUM CHLORIDE
     Dosage: 1 DOSAGE FORM, AT AN UNSPECIFIED FREQUENCY
     Route: 042
  7. SODIUM CHLORIDE [Suspect]
     Active Substance: SODIUM CHLORIDE
     Dosage: SODIUM CHLORIDE, INJECTION USP (DOSAGE FORM: SOLUTION INTRAMUSCULAR) 10 ML, ONCE
     Route: 041
  8. CEFTRIAXONE SODIUM [Suspect]
     Active Substance: CEFTRIAXONE SODIUM
     Indication: Osteomyelitis
     Dosage: DOSAGE FORM: POWDER FOR SOLUTION INTRAMUSCULAR 2 G, 1 EVERY 1 DAYS
     Route: 042
  9. INVANZ [Suspect]
     Active Substance: ERTAPENEM SODIUM
     Indication: Osteomyelitis
     Dosage: DOSAGE FORM: POWDER FOR SOLUTION INTRAMUSCULAR, 1 G, ONCE
     Route: 041
  10. ASPIRIN [Concomitant]
     Active Substance: ASPIRIN
     Indication: Product used for unknown indication
     Dosage: DOSAGE FORM: NOT SPECIFIED
     Route: 065
  11. ADVAIR HFA [Concomitant]
     Active Substance: FLUTICASONE PROPIONATE\SALMETEROL XINAFOATE
     Indication: Product used for unknown indication
     Dosage: DOSAGE FORM: NOT SPECIFIED, PRN
     Route: 065
  12. ATORVASTATIN [Concomitant]
     Active Substance: ATORVASTATIN
     Indication: Product used for unknown indication
     Dosage: AT AN UNSPECIFIED DOSE AND FREQUENCY, PRN
     Route: 065
  13. BENADRYL [Concomitant]
     Active Substance: DIPHENHYDRAMINE HYDROCHLORIDE
     Indication: Product used for unknown indication
     Dosage: DOSAGE FORM: NOT SPECIFIED, PRN
     Route: 065
  14. FERROUS SULFATE [Concomitant]
     Active Substance: FERROUS SULFATE
     Indication: Product used for unknown indication
     Dosage: DOSAGE FORM: NOT SPECIFIED, PRN
     Route: 065
  15. HUMULIN N [Concomitant]
     Active Substance: INSULIN HUMAN
     Indication: Product used for unknown indication
     Dosage: DOSAGE FORM: NOT SPECIFIED, PRN
     Route: 065
  16. NPH INSULIN [Concomitant]
     Active Substance: INSULIN BEEF
     Indication: Product used for unknown indication
     Dosage: DOSAGE FORM: NOT SPECIFIED, PRN
     Route: 065
  17. INVOKANA [Concomitant]
     Active Substance: CANAGLIFLOZIN
     Indication: Product used for unknown indication
     Dosage: AT AN UNSPECIFIED DOSE AND FREQUENCY
     Route: 065
  18. METFORMIN [Concomitant]
     Active Substance: METFORMIN HYDROCHLORIDE
     Indication: Product used for unknown indication
     Dosage: AT AN UNSPECIFIED DOSE AND FREQUENCY
     Route: 065
  19. QUETIAPINE [Concomitant]
     Active Substance: QUETIAPINE
     Indication: Product used for unknown indication
     Dosage: AT AN UNSPECIFIED DOSE AND FREQUENCY
     Route: 065
  20. SPIRIVA [Concomitant]
     Active Substance: TIOTROPIUM BROMIDE MONOHYDRATE
     Indication: Product used for unknown indication
     Dosage: UNK, PRN
     Route: 065
  21. TYLENOL [Concomitant]
     Active Substance: ACETAMINOPHEN
     Indication: Product used for unknown indication
     Dosage: DOSAGE FORM: NOT SPECIFIED, PRN
     Route: 065
  22. VENTOLIN [Concomitant]
     Active Substance: ALBUTEROL SULFATE
     Indication: Product used for unknown indication
     Dosage: DOSAGE FORM: NOT SPECIFIED, PRN
     Route: 065
  23. VICTOZA [Concomitant]
     Active Substance: LIRAGLUTIDE
     Indication: Product used for unknown indication
     Dosage: VICTOZA MULTI DOSE PEN-INJECTOR, DOSAGE FORM: SOLUTION SUBCUTANEOUS, 30 DOSES (0.6 MG) PRN
     Route: 065
  24. VICTOZA [Concomitant]
     Active Substance: LIRAGLUTIDE
     Dosage: VICTOZA MULTI DOSE PEN-INJECTOR, DOSAGE FORM: SOLUTION SUBCUTANEOUS, 15 DOSES (1.2 MG) PRN
     Route: 065
  25. VICTOZA [Concomitant]
     Active Substance: LIRAGLUTIDE
     Dosage: VICTOZA MULTI DOSE PEN-INJECTOR, DOSAGE FORM: SOLUTION SUBCUTANEOUS, 10 DOSES (1.8MG) PRN
     Route: 065

REACTIONS (10)
  - Oxygen saturation decreased [Recovered/Resolved]
  - Unresponsive to stimuli [Recovered/Resolved]
  - Dyspnoea [Recovered/Resolved]
  - Acute myocardial infarction [Recovered/Resolved]
  - Endotracheal intubation [Recovered/Resolved]
  - Respiratory failure [Recovered/Resolved]
  - Speech disorder [Recovered/Resolved]
  - Heart rate increased [Recovered/Resolved]
  - Blood pressure increased [Recovered/Resolved]
  - Hypersensitivity [Recovered/Resolved]
